FAERS Safety Report 14685221 (Version 1)
Quarter: 2018Q1

REPORT INFORMATION
  Report Type: Report from Study
  Country: BR (occurrence: BR)
  Receive Date: 20180327
  Receipt Date: 20180327
  Transmission Date: 20180509
  Serious: Yes (Other)
  Sender: FDA-Public Use
  Company Number: PHHY2018BR053159

PATIENT
  Sex: Female

DRUGS (2)
  1. LEE011 [Suspect]
     Active Substance: RIBOCICLIB
     Indication: NEOPLASM
     Dosage: UNK
     Route: 065
     Dates: start: 20180207
  2. LEE011 [Suspect]
     Active Substance: RIBOCICLIB
     Indication: LYMPHOMA

REACTIONS (3)
  - Mucosal inflammation [Unknown]
  - Electrocardiogram T wave inversion [Unknown]
  - Leukopenia [Unknown]
